FAERS Safety Report 5740733-8 (Version None)
Quarter: 2008Q2

REPORT INFORMATION
  Report Type: 
  Country: None (occurrence: None)
  Receive Date: 20080516
  Receipt Date: 20080507
  Transmission Date: 20081010
  Serious: Yes (Other)
  Sender: FDA-Public Use
  Company Number: US-PFIZER INC-2006088380

PATIENT
  Sex: Female

DRUGS (4)
  1. LIPITOR [Suspect]
     Dosage: DAILY DOSE:10MG
     Route: 048
     Dates: start: 20000101, end: 20030101
  2. SYNTHROID [Concomitant]
  3. METROCREAM [Concomitant]
     Indication: ROSACEA
  4. ULTRAM [Concomitant]
     Indication: NEURALGIA

REACTIONS (19)
  - AMNESIA [None]
  - ARTHRITIS [None]
  - BALANCE DISORDER [None]
  - CERVICAL SPINAL STENOSIS [None]
  - DEMYELINATING POLYNEUROPATHY [None]
  - DEPRESSION [None]
  - FALL [None]
  - FATIGUE [None]
  - FIBULA FRACTURE [None]
  - GAIT DISTURBANCE [None]
  - HEADACHE [None]
  - IRRITABILITY [None]
  - LYMPHADENOPATHY [None]
  - MYOPATHY [None]
  - NEUROPATHY PERIPHERAL [None]
  - PERONEAL NERVE PALSY [None]
  - ROSACEA [None]
  - TENDONITIS [None]
  - URINARY TRACT INFECTION [None]
